FAERS Safety Report 8861798 (Version 1)
Quarter: 2012Q4

REPORT INFORMATION
  Report Type: 
  Country: US (occurrence: US)
  Receive Date: 20121025
  Receipt Date: 20121025
  Transmission Date: 20130627
  Serious: No
  Sender: FDA-Public Use
  Company Number: US-AMGEN-USASP2012021786

PATIENT
  Age: 58 Year
  Sex: Female
  Weight: 89.8 kg

DRUGS (12)
  1. ENBREL [Suspect]
     Indication: PRODUCT USED FOR UNKNOWN INDICATION
     Dosage: 50 mg, qwk
     Route: 058
  2. SINGULAIR [Concomitant]
     Dosage: 10 mg, UNK
  3. AMBIEN [Concomitant]
     Dosage: 5 mg, UNK
  4. ARTHROTEC [Concomitant]
  5. PREMPRO [Concomitant]
  6. VERAMYST [Concomitant]
     Dosage: 27.5 mug, UNK
  7. NEXIUM                             /01479302/ [Concomitant]
     Dosage: 20 mg, UNK
  8. METHOTREXATE [Concomitant]
  9. ROBAXIN [Concomitant]
  10. EXCEDRIN                           /00110301/ [Concomitant]
  11. CALCIUM W/VITAMIN D                /00188401/ [Concomitant]
  12. FOLIC ACID [Concomitant]
     Dosage: 5 mg, UNK

REACTIONS (1)
  - Headache [Unknown]
